FAERS Safety Report 11537526 (Version 5)
Quarter: 2017Q1

REPORT INFORMATION
  Report Type: Report from Study
  Country: DE (occurrence: DE)
  Receive Date: 20150922
  Receipt Date: 20170213
  Transmission Date: 20170428
  Serious: Yes (Death, Hospitalization, Other)
  Sender: FDA-Public Use
  Company Number: DE-INCYTE CORPORATION-2015IN003064

PATIENT
  Age: 79 Year
  Sex: Male
  Weight: 94 kg

DRUGS (11)
  1. LECANIDIPINE [Concomitant]
     Dosage: 5 MG, QD
  2. BISOPROL [Concomitant]
     Dosage: 5 MG, QD
  3. LECANIDIPINE [Concomitant]
     Indication: PRODUCT USED FOR UNKNOWN INDICATION
     Dosage: 20 MG
     Route: 065
  4. L-THYROXIN [Concomitant]
     Active Substance: LEVOTHYROXINE SODIUM
     Indication: HYPERTHYROIDISM
     Dosage: 75 MG, UNK
  5. CARMEN [Concomitant]
     Active Substance: LERCANIDIPINE
     Indication: HYPERTENSION
     Route: 065
  6. BISOPROL [Concomitant]
     Indication: PRODUCT USED FOR UNKNOWN INDICATION
     Dosage: 5 MG, QD
     Route: 065
  7. PANTOPRAZOLE [Concomitant]
     Active Substance: PANTOPRAZOLE SODIUM
     Indication: PRODUCT USED FOR UNKNOWN INDICATION
     Dosage: 40 MG, QD
     Route: 065
  8. INNOHEP [Concomitant]
     Active Substance: TINZAPARIN SODIUM
     Indication: THROMBOSIS
     Dosage: 0.7 ML, UNK
     Route: 065
     Dates: end: 20160421
  9. JAKAVI [Suspect]
     Active Substance: RUXOLITINIB
     Indication: PRIMARY MYELOFIBROSIS
     Dosage: 15 MG, BID (1-0-1)
     Route: 065
     Dates: start: 20140613, end: 20160304
  10. BISOPROL [Concomitant]
     Indication: HYPERTENSION
     Dosage: 2.5 MG, UNK
     Route: 065
  11. ACC [Concomitant]
     Active Substance: ACETYLCYSTEINE
     Indication: PRODUCT USED FOR UNKNOWN INDICATION
     Dosage: 600 MG, QD
     Route: 065

REACTIONS (12)
  - Pleural effusion [Recovered/Resolved with Sequelae]
  - Anaemia [Recovered/Resolved]
  - Duodenogastric reflux [Unknown]
  - Pneumonia [Recovered/Resolved]
  - Deep vein thrombosis [Recovered/Resolved with Sequelae]
  - Pain [Recovered/Resolved]
  - Gastritis [Unknown]
  - Pulmonary embolism [Recovered/Resolved]
  - Renal impairment [Recovered/Resolved]
  - Death [Fatal]
  - Pulmonary infarction [Recovered/Resolved with Sequelae]
  - Proctitis [Unknown]

NARRATIVE: CASE EVENT DATE: 201504
